FAERS Safety Report 5016863-5 (Version None)
Quarter: 2006Q2

REPORT INFORMATION
  Report Type: 
  Country: None (occurrence: None)
  Receive Date: 20060602
  Receipt Date: 20060505
  Transmission Date: 20061013
  Serious: Yes (Hospitalization)
  Sender: FDA-Public Use
  Company Number: AU-AVENTIS-200614874GDDC

PATIENT
  Age: 68 Year
  Sex: Male

DRUGS (7)
  1. ARAVA [Suspect]
     Indication: RHEUMATOID ARTHRITIS
     Route: 048
     Dates: start: 20050907, end: 20060201
  2. PREDNISOLONE [Concomitant]
     Route: 048
  3. NEXIUM [Concomitant]
     Dosage: DOSE: UNK
  4. GLYADE [Concomitant]
     Dosage: DOSE: UNK
  5. JEZIL [Concomitant]
     Dosage: DOSE: UNK
  6. ENDEP [Concomitant]
     Dosage: DOSE: UNK
  7. PANAMAX [Concomitant]
     Indication: RHEUMATOID ARTHRITIS
     Dosage: DOSE: UNK
     Route: 048

REACTIONS (3)
  - DIARRHOEA [None]
  - GASTRIC ULCER [None]
  - GASTROINTESTINAL DISORDER [None]
